FAERS Safety Report 7556683-0 (Version None)
Quarter: 2011Q2

REPORT INFORMATION
  Report Type: 
  Country: None (occurrence: None)
  Receive Date: 20110620
  Receipt Date: 20110613
  Transmission Date: 20111010
  Serious: Yes (Other)
  Sender: FDA-Public Use
  Company Number: IE-SANOFI-AVENTIS-2011SA031003

PATIENT
  Age: 50 Year
  Sex: Male

DRUGS (4)
  1. BACLOFEN [Concomitant]
     Route: 048
  2. AMITRIPTYLINE HYDROCHLORIDE [Concomitant]
     Route: 048
  3. ORAMORPH SR [Concomitant]
     Route: 065
  4. RILUTEK [Suspect]
     Indication: MOTOR NEURONE DISEASE
     Route: 048
     Dates: end: 20110516

REACTIONS (4)
  - SLEEP DISORDER [None]
  - PANIC REACTION [None]
  - DYSPNOEA [None]
  - WITHDRAWAL SYNDROME [None]
